FAERS Safety Report 18842254 (Version 1)
Quarter: 2021Q1

REPORT INFORMATION
  Report Type: Spontaneous
  Country: CH (occurrence: CH)
  Receive Date: 20210203
  Receipt Date: 20210203
  Transmission Date: 20210419
  Serious: Yes (Other)
  Sender: FDA-Public Use
  Company Number: CH-BAYER-2020-078674

PATIENT
  Age: 27 Year
  Sex: Female

DRUGS (1)
  1. JAYDESS [Suspect]
     Active Substance: LEVONORGESTREL
     Dosage: 14 ?G PER DAY, CONTINUOUSLY
     Route: 015
     Dates: start: 20190429, end: 20200505

REACTIONS (8)
  - Placental infarction [Recovered/Resolved]
  - Drug ineffective [None]
  - Amniotic cavity infection [Recovered/Resolved]
  - Meconium in amniotic fluid [Recovered/Resolved]
  - Pregnancy with contraceptive device [Recovered/Resolved]
  - Small size placenta [Recovered/Resolved]
  - Foetal placental thrombosis [Recovered/Resolved]
  - Placental disorder [Recovered/Resolved]

NARRATIVE: CASE EVENT DATE: 20200505
